FAERS Safety Report 6688955-6 (Version None)
Quarter: 2010Q2

REPORT INFORMATION
  Report Type: 
  Country: None (occurrence: None)
  Receive Date: 20100420
  Receipt Date: 20100412
  Transmission Date: 20101027
  Serious: Yes (Hospitalization)
  Sender: FDA-Public Use
  Company Number: DE-WYE-H14618910

PATIENT
  Age: 52 Year
  Sex: Female
  Weight: 66 kg

DRUGS (10)
  1. PANTOZOL [Suspect]
     Indication: RENAL TRANSPLANT
     Route: 048
     Dates: start: 20090301
  2. CELLCEPT [Suspect]
     Route: 048
     Dates: start: 20090301
  3. SANDIMMUNE [Suspect]
     Indication: RENAL TRANSPLANT
     Route: 048
     Dates: start: 20090301, end: 20090707
  4. SANDIMMUNE [Suspect]
     Route: 048
     Dates: start: 20090710
  5. LEVOTHYROXINE SODIUM [Concomitant]
     Indication: HYPOTHYROIDISM
     Route: 048
  6. VALCYTE [Concomitant]
     Indication: RENAL TRANSPLANT
     Route: 048
     Dates: start: 20090301
  7. COTRIM [Concomitant]
     Indication: RENAL TRANSPLANT
     Route: 048
     Dates: start: 20090301
  8. FURORESE [Concomitant]
     Indication: HYPERTENSION
     Route: 048
     Dates: start: 20030101
  9. PREDNISOLON [Suspect]
     Indication: RENAL TRANSPLANT
     Route: 048
     Dates: start: 20090301
  10. BISOPROLOL [Concomitant]
     Indication: HYPERTENSION
     Route: 048
     Dates: start: 20030101

REACTIONS (1)
  - GASTROENTERITIS [None]
